FAERS Safety Report 6119786-3 (Version None)
Quarter: 2009Q1

REPORT INFORMATION
  Report Type: 
  Country: None (occurrence: None)
  Receive Date: 20090316
  Receipt Date: 20090304
  Transmission Date: 20090719
  Serious: Yes (Hospitalization, Disabling, Other)
  Sender: FDA-Public Use
  Company Number: US-PFIZER INC-2009179016

PATIENT
  Sex: Male

DRUGS (3)
  1. NORVASC [Suspect]
     Indication: HYPERTENSION
     Dates: start: 20030101, end: 20090304
  2. HYZAAR [Concomitant]
     Dosage: UNK
     Dates: start: 20020101
  3. CEFOXITIN [Concomitant]
     Dates: start: 20020101

REACTIONS (4)
  - CELLULITIS [None]
  - GRAVITATIONAL OEDEMA [None]
  - INSOMNIA [None]
  - OBESITY [None]
